FAERS Safety Report 6881585-2 (Version None)
Quarter: 2010Q3

REPORT INFORMATION
  Report Type: 
  Country: None (occurrence: None)
  Receive Date: 20100729
  Receipt Date: 20100720
  Transmission Date: 20110219
  Serious: No
  Sender: FDA-Public Use
  Company Number: US-BIOGENIDEC-2010BI023930

PATIENT
  Age: 39 Year
  Sex: Male
  Weight: 69 kg

DRUGS (2)
  1. TYSABRI [Suspect]
     Indication: MULTIPLE SCLEROSIS
     Route: 042
     Dates: start: 20100318
  2. BACLOFEN [Concomitant]
     Indication: GAIT DISTURBANCE

REACTIONS (4)
  - DECREASED APPETITE [None]
  - NEUROFIBROMATOSIS [None]
  - TEMPERATURE INTOLERANCE [None]
  - WEIGHT DECREASED [None]
